FAERS Safety Report 12293789 (Version 14)
Quarter: 2017Q3

REPORT INFORMATION
  Report Type: Report from Study
  Country: CA (occurrence: CA)
  Receive Date: 20160421
  Receipt Date: 20170905
  Transmission Date: 20171127
  Serious: Yes (Other)
  Sender: FDA-Public Use
  Company Number: CA-ROCHE-1591315

PATIENT
  Age: 66 Year
  Sex: Female
  Weight: 130 kg

DRUGS (6)
  1. METHOTREXATE. [Concomitant]
     Active Substance: METHOTREXATE
  2. CORTISONE [Suspect]
     Active Substance: CORTISONE\HYDROCORTISONE
     Indication: PRODUCT USED FOR UNKNOWN INDICATION
     Route: 065
     Dates: start: 201606
  3. FOLIC ACID. [Concomitant]
     Active Substance: FOLIC ACID
  4. TELMISARTAN. [Concomitant]
     Active Substance: TELMISARTAN
  5. ACTEMRA [Suspect]
     Active Substance: TOCILIZUMAB
     Indication: RHEUMATOID ARTHRITIS
     Route: 058
     Dates: start: 20161104
  6. ACTEMRA [Suspect]
     Active Substance: TOCILIZUMAB
     Indication: RHEUMATOID ARTHRITIS
     Route: 042
     Dates: start: 20150413, end: 20160825

REACTIONS (24)
  - Blood pressure diastolic decreased [Unknown]
  - Arthralgia [Unknown]
  - Respiratory rate increased [Unknown]
  - Headache [Not Recovered/Not Resolved]
  - Injection site bruising [Unknown]
  - Ear pain [Not Recovered/Not Resolved]
  - Joint swelling [Not Recovered/Not Resolved]
  - Weight increased [Unknown]
  - Aphonia [Unknown]
  - Peripheral swelling [Unknown]
  - Joint swelling [Unknown]
  - Poor venous access [Unknown]
  - Dehydration [Unknown]
  - Arthralgia [Not Recovered/Not Resolved]
  - Blood pressure diastolic decreased [Unknown]
  - Umbilical hernia [Not Recovered/Not Resolved]
  - Body temperature decreased [Unknown]
  - Viral infection [Unknown]
  - Oropharyngeal pain [Not Recovered/Not Resolved]
  - Peripheral swelling [Not Recovered/Not Resolved]
  - Lower respiratory tract congestion [Not Recovered/Not Resolved]
  - Blood pressure decreased [Unknown]
  - Oxygen saturation decreased [Unknown]
  - Drug ineffective [Unknown]

NARRATIVE: CASE EVENT DATE: 20150608
